FAERS Safety Report 8910315 (Version 2)
Quarter: 2012Q4

REPORT INFORMATION
  Report Type: 
  Country: US (occurrence: US)
  Receive Date: 20121114
  Receipt Date: 20121210
  Transmission Date: 20130627
  Serious: Yes (Hospitalization)
  Sender: FDA-Public Use
  Company Number: US-ELI_LILLY_AND_COMPANY-US201211001236

PATIENT
  Age: 62 None
  Sex: Male
  Weight: 99.77 kg

DRUGS (14)
  1. BYDUREON [Suspect]
     Indication: TYPE 2 DIABETES MELLITUS
     Dosage: 2 mg, weekly (1/W)
     Route: 058
     Dates: start: 201209
  2. AMARYL [Concomitant]
     Indication: TYPE 2 DIABETES MELLITUS
     Dosage: 1 mg, bid
     Route: 048
     Dates: end: 201207
  3. AMARYL [Concomitant]
     Dosage: 4 mg, bid
     Route: 048
     Dates: start: 201207, end: 201209
  4. AMARYL [Concomitant]
     Dosage: 1 mg, bid
     Route: 048
     Dates: start: 201209, end: 20121026
  5. AMARYL [Concomitant]
     Dosage: 0.5 mg, bid
     Route: 048
     Dates: start: 20121027
  6. AMLODIPINE W/BENAZEPRIL [Concomitant]
     Indication: HYPERTENSION
     Dosage: 1 DF, qd
     Route: 048
  7. ASPIRIN [Concomitant]
     Indication: HYPERTENSION
     Dosage: 81 mg, qd
     Route: 048
  8. METOPROLOL [Concomitant]
     Indication: HYPERTENSION
     Dosage: 50 mg, qd
     Route: 048
  9. BACLOFEN [Concomitant]
     Indication: OESOPHAGEAL SPASM
     Dosage: 20 mg, bid
     Route: 048
  10. SERTRALINE [Concomitant]
     Indication: OESOPHAGEAL SPASM
     Dosage: 100 mg, each evening
     Route: 048
  11. WELLBUTRIN [Concomitant]
     Indication: OESOPHAGEAL SPASM
     Dosage: 75 mg, each evening
     Route: 048
  12. LEVOTHYROXINE [Concomitant]
     Indication: HYPOTHYROIDISM
     Dosage: 50 ug, qd
     Route: 048
     Dates: start: 2011
  13. SIMVASTATIN [Concomitant]
     Indication: BLOOD CHOLESTEROL INCREASED
     Dosage: 20 mg, each evening
     Route: 048
  14. LOVAZA [Concomitant]
     Indication: BLOOD CHOLESTEROL INCREASED
     Dosage: 20 mg, bid
     Route: 048

REACTIONS (6)
  - Syncope [Recovered/Resolved]
  - Dyspnoea [Recovered/Resolved]
  - Dizziness [Not Recovered/Not Resolved]
  - Hyperhidrosis [Unknown]
  - Blood glucose decreased [Recovering/Resolving]
  - Nausea [Recovering/Resolving]
